FAERS Safety Report 19503904 (Version 3)
Quarter: 2021Q3

REPORT INFORMATION
  Report Type: Spontaneous
  Country: GB (occurrence: GB)
  Receive Date: 20210707
  Receipt Date: 20210916
  Transmission Date: 20211014
  Serious: Yes (Hospitalization, Other)
  Sender: FDA-Public Use
  Company Number: GB-MYLANLABS-2021M1040166

PATIENT
  Age: 73 Year
  Sex: Male
  Weight: 99.8 kg

DRUGS (5)
  1. BENDAMUSTINE HYDROCHLORIDE. [Suspect]
     Active Substance: BENDAMUSTINE HYDROCHLORIDE
     Indication: MANTLE CELL LYMPHOMA
     Dosage: UNK
     Route: 040
     Dates: start: 20200309, end: 20200309
  2. CYTARABINE. [Suspect]
     Active Substance: CYTARABINE
     Dosage: UNK
     Route: 065
     Dates: start: 20200309, end: 20200311
  3. RITUXIMAB. [Suspect]
     Active Substance: RITUXIMAB
     Indication: MANTLE CELL LYMPHOMA
     Dosage: 1 DOSAGE FORM
     Route: 065
     Dates: start: 20200309, end: 20200309
  4. PARSACLISIB [Suspect]
     Active Substance: PARSACLISIB
     Indication: MANTLE CELL LYMPHOMA
     Dosage: 20 MILLIGRAM, QD (STRENGTH?20MG QD)
     Route: 048
     Dates: start: 20200115, end: 20200303
  5. CYTARABINE. [Suspect]
     Active Substance: CYTARABINE
     Indication: MANTLE CELL LYMPHOMA
     Dosage: CUMULATIVE DOSE 20
     Dates: start: 20200115, end: 20200303

REACTIONS (3)
  - Off label use [Unknown]
  - Pneumonia [Recovered/Resolved]
  - Neutropenic sepsis [Recovered/Resolved]

NARRATIVE: CASE EVENT DATE: 20200321
